FAERS Safety Report 6007307-5 (Version None)
Quarter: 2008Q4

REPORT INFORMATION
  Report Type: 
  Country: None (occurrence: None)
  Receive Date: 20081217
  Receipt Date: 20080303
  Transmission Date: 20090506
  Serious: No
  Sender: FDA-Public Use
  Company Number: US-ASTRAZENECA-2008UW04343

PATIENT
  Age: 69 Year
  Sex: Female
  Weight: 88.5 kg

DRUGS (3)
  1. CRESTOR [Suspect]
     Indication: HYPERCHOLESTEROLAEMIA
     Route: 048
  2. BENECAR [Concomitant]
  3. GLUCOPHAGE [Concomitant]

REACTIONS (3)
  - HEAD DISCOMFORT [None]
  - HEADACHE [None]
  - PAROSMIA [None]
